FAERS Safety Report 9213091 (Version 3)
Quarter: 2013Q2

REPORT INFORMATION
  Report Type: Spontaneous
  Country: US (occurrence: US)
  Receive Date: 20130405
  Receipt Date: 20130614
  Transmission Date: 20140414
  Serious: Yes (Hospitalization)
  Sender: FDA-Public Use
  Company Number: US-PFIZER INC-2013104654

PATIENT
  Age: 72 Year
  Sex: Female
  Weight: 79.82 kg

DRUGS (5)
  1. SUTENT [Suspect]
     Indication: METASTATIC RENAL CELL CARCINOMA
     Dosage: 50 MG, 1X/DAY
     Dates: start: 20130321, end: 20130401
  2. MAALOX [Concomitant]
     Dosage: UNK
  3. ZOFRAN [Concomitant]
     Dosage: UNK
  4. ZOCOR [Concomitant]
     Dosage: UNK
  5. LIPITOR [Concomitant]
     Dosage: UNK

REACTIONS (7)
  - Gastric ulcer haemorrhage [Unknown]
  - Haemoglobin decreased [Unknown]
  - Chest discomfort [Unknown]
  - Diarrhoea [Unknown]
  - Dizziness [Unknown]
  - Fall [Unknown]
  - Blood glucose increased [Unknown]
